FAERS Safety Report 14578634 (Version 1)
Quarter: 2018Q1

REPORT INFORMATION
  Report Type: Spontaneous
  Country: US (occurrence: US)
  Receive Date: 20180227
  Receipt Date: 20180227
  Transmission Date: 20180509
  Serious: No
  Sender: FDA-Public Use
  Company Number: None

PATIENT
  Age: 58 Year
  Sex: Female
  Weight: 50.85 kg

DRUGS (3)
  1. FLUOXETINE [Suspect]
     Active Substance: FLUOXETINE HYDROCHLORIDE
     Indication: DEPRESSION
     Route: 048
     Dates: start: 19950201, end: 20180227
  2. CALCIUM [Concomitant]
     Active Substance: CALCIUM
  3. VITAMIN D [Concomitant]
     Active Substance: CHOLECALCIFEROL

REACTIONS (14)
  - Dyskinesia [None]
  - Divorced [None]
  - Toothache [None]
  - Irritability [None]
  - Spleen disorder [None]
  - Tongue spasm [None]
  - Jaw disorder [None]
  - Muscle rigidity [None]
  - Therapy change [None]
  - Tinnitus [None]
  - Anxiety [None]
  - Drug dependence [None]
  - Tongue discomfort [None]
  - Family stress [None]

NARRATIVE: CASE EVENT DATE: 20120601
